FAERS Safety Report 4638913-8 (Version None)
Quarter: 2005Q2

REPORT INFORMATION
  Report Type: 
  Country: None (occurrence: None)
  Receive Date: 20050414
  Receipt Date: 20050414
  Transmission Date: 20051028
  Serious: Yes (Other)
  Sender: FDA-Public Use
  Company Number: None

PATIENT
  Sex: Female

DRUGS (2)
  1. LACTULOSE [Suspect]
     Indication: CONSTIPATION
  2. MOM - MG CITRATE DIDN'T WORK [Suspect]

REACTIONS (3)
  - ABDOMINAL DISTENSION [None]
  - FLATULENCE [None]
  - NO THERAPEUTIC RESPONSE [None]
